FAERS Safety Report 19434592 (Version 1)
Quarter: 2021Q2

REPORT INFORMATION
  Report Type: Spontaneous
  Country: US (occurrence: US)
  Receive Date: 20210617
  Receipt Date: 20210617
  Transmission Date: 20210717
  Serious: No
  Sender: FDA-Public Use
  Company Number: US-ROCHE-2667578

PATIENT
  Age: 66 Year
  Sex: Female

DRUGS (5)
  1. ACTEMRA [Suspect]
     Active Substance: TOCILIZUMAB
     Indication: RHEUMATOID ARTHRITIS
     Dosage: 162 MG/0.9ML ACTEMRA ACTPEN
     Route: 058
     Dates: start: 20200604
  2. ACTEMRA [Suspect]
     Active Substance: TOCILIZUMAB
  3. ATENOLOL. [Concomitant]
     Active Substance: ATENOLOL
  4. ACTEMRA [Suspect]
     Active Substance: TOCILIZUMAB
  5. PLAQUENIL [Concomitant]
     Active Substance: HYDROXYCHLOROQUINE SULFATE

REACTIONS (2)
  - Dizziness [Unknown]
  - Alopecia [Unknown]

NARRATIVE: CASE EVENT DATE: 20200801
